FAERS Safety Report 6042682-7 (Version None)
Quarter: 2009Q1

REPORT INFORMATION
  Report Type: 
  Country: None (occurrence: None)
  Receive Date: 20090119
  Receipt Date: 20090109
  Transmission Date: 20090719
  Serious: Yes (Other)
  Sender: FDA-Public Use
  Company Number: PHHY2008JP33318

PATIENT
  Age: 82 Year
  Sex: Female

DRUGS (6)
  1. VOLTAREN [Suspect]
     Indication: ANALGESIA
     Dosage: 75 MG/DAY
     Route: 054
     Dates: start: 20081219, end: 20081220
  2. CARDIAC DRUGS [Concomitant]
  3. TEGRETOL [Concomitant]
  4. LIPITOR [Concomitant]
     Dosage: UNK
  5. MICARDIS [Concomitant]
     Dosage: UNK
  6. ADALAT [Concomitant]
     Dosage: UNK

REACTIONS (2)
  - HALLUCINATION [None]
  - SPEECH DISORDER [None]
